FAERS Safety Report 21185588 (Version 1)
Quarter: 2022Q3

REPORT INFORMATION
  Report Type: Spontaneous
  Country: US (occurrence: US)
  Receive Date: 20220808
  Receipt Date: 20220808
  Transmission Date: 20221027
  Serious: No
  Sender: FDA-Public Use
  Company Number: US-009507513-2208USA002568

PATIENT
  Age: 46 Year
  Sex: Male

DRUGS (6)
  1. STROMECTOL [Suspect]
     Active Substance: IVERMECTIN
     Indication: Tropical eosinophilia
     Route: 048
  2. STROMECTOL [Suspect]
     Active Substance: IVERMECTIN
     Indication: Pulmonary eosinophilia
  3. PREDNISONE [Concomitant]
     Active Substance: PREDNISONE
     Indication: Tropical eosinophilia
  4. PREDNISONE [Concomitant]
     Active Substance: PREDNISONE
     Indication: Pulmonary eosinophilia
  5. ALBUTEROL [Concomitant]
     Active Substance: ALBUTEROL
     Indication: Tropical eosinophilia
  6. ALBUTEROL [Concomitant]
     Active Substance: ALBUTEROL
     Indication: Pulmonary eosinophilia

REACTIONS (1)
  - Product use in unapproved indication [Unknown]
